FAERS Safety Report 24366809 (Version 1)
Quarter: 2024Q3

REPORT INFORMATION
  Report Type: Other
  Country: FR (occurrence: FR)
  Receive Date: 20240926
  Receipt Date: 20240926
  Transmission Date: 20241016
  Serious: Yes (Hospitalization, Disabling)
  Sender: B BRAUN
  Company Number: FR-B.Braun Medical Inc.-2162044

PATIENT
  Age: 14 Month

DRUGS (2)
  1. HEPARIN SODIUM IN DEXTROSE [Suspect]
     Active Substance: HEPARIN SODIUM
     Indication: Prophylaxis
  2. Papverine [Concomitant]

REACTIONS (1)
  - Drug ineffective [Unknown]
